FAERS Safety Report 14838524 (Version 1)
Quarter: 2018Q2

REPORT INFORMATION
  Report Type: Spontaneous
  Country: US (occurrence: US)
  Receive Date: 20180418
  Receipt Date: 20180418
  Transmission Date: 20180711
  Serious: Yes (Life-Threatening, Hospitalization, Disabling)
  Sender: FDA-Public Use
  Company Number: None

PATIENT
  Age: 53 Year
  Sex: Male
  Weight: 113.4 kg

DRUGS (15)
  1. CLOPIDOGREL [Suspect]
     Active Substance: CLOPIDOGREL BISULFATE
     Indication: DIABETES MELLITUS
     Dosage: ?          QUANTITY:80 TOT - TOTAL;?
     Route: 048
     Dates: start: 20171228, end: 20180205
  2. FUROSEMIDE. [Concomitant]
     Active Substance: FUROSEMIDE
  3. CLOPIDOGREL [Suspect]
     Active Substance: CLOPIDOGREL BISULFATE
     Indication: BLOOD CHOLESTEROL INCREASED
     Dosage: ?          QUANTITY:80 TOT - TOTAL;?
     Route: 048
     Dates: start: 20171228, end: 20180205
  4. ROSUVASTATIN. [Concomitant]
     Active Substance: ROSUVASTATIN
  5. JANUMET [Concomitant]
     Active Substance: METFORMIN HYDROCHLORIDE\SITAGLIPTIN PHOSPHATE
  6. PANTOPRAZOLE [Concomitant]
     Active Substance: PANTOPRAZOLE
  7. VITAMIN B12 [Concomitant]
     Active Substance: CYANOCOBALAMIN
  8. ASPIRIN. [Concomitant]
     Active Substance: ASPIRIN
  9. CLOPIDOGREL [Suspect]
     Active Substance: CLOPIDOGREL BISULFATE
     Indication: ANGIOPLASTY
     Dosage: ?          QUANTITY:80 TOT - TOTAL;?
     Route: 048
     Dates: start: 20171228, end: 20180205
  10. TELMISARTAN. [Concomitant]
     Active Substance: TELMISARTAN
  11. DILTIAZEM. [Concomitant]
     Active Substance: DILTIAZEM
  12. GLIMEPIRIDE. [Concomitant]
     Active Substance: GLIMEPIRIDE
  13. CLOPIDOGREL [Concomitant]
     Active Substance: CLOPIDOGREL BISULFATE
  14. CLOPIDOGREL [Suspect]
     Active Substance: CLOPIDOGREL BISULFATE
     Indication: CARDIAC DISORDER
     Dosage: ?          QUANTITY:80 TOT - TOTAL;?
     Route: 048
     Dates: start: 20171228, end: 20180205
  15. FISH OIL [Concomitant]
     Active Substance: FISH OIL

REACTIONS (7)
  - Drug dispensing error [None]
  - Cerebrovascular accident [None]
  - Dyspnoea [None]
  - Product quality issue [None]
  - Dizziness [None]
  - Wrong drug administered [None]
  - Loss of consciousness [None]

NARRATIVE: CASE EVENT DATE: 20180120
